FAERS Safety Report 7334857 (Version 3)
Quarter: 2012Q4

REPORT INFORMATION
  Report Type: 
  Country: US (occurrence: None)
  Receive Date: 20100311
  Receipt Date: 20120917
  Transmission Date: 20130627
  Serious: Yes (Other)
  Sender: FDA-Public Use
  Company Number: 2010-0679

PATIENT
  Age: 11 Year
  Sex: Male
  Weight: 25 kg

DRUGS (2)
  1. INCRELEX [Suspect]
     Indication: INSULIN-LIKE GROWTH FACTOR DECREASED
     Dosage: MAXIMUM DOSE RECEIVED
     Route: 058
     Dates: start: 2005, end: 200912
  2. None [Concomitant]

REACTIONS (4)
  - Benign intracranial hypertension [None]
  - Decreased appetite [None]
  - Constipation [None]
  - Neutrophil count decreased [None]
